FAERS Safety Report 10594712 (Version 1)
Quarter: 2014Q4

REPORT INFORMATION
  Report Type: Spontaneous
  Country: US (occurrence: US)
  Receive Date: 20141120
  Receipt Date: 20141120
  Transmission Date: 20150529
  Serious: No
  Sender: FDA-Public Use
  Company Number: US-TEVA-442493USA

PATIENT
  Sex: Male

DRUGS (1)
  1. CILOSTAZOL. [Suspect]
     Active Substance: CILOSTAZOL
     Dosage: 100 MILLIGRAM DAILY;
     Route: 048
     Dates: start: 20131030

REACTIONS (1)
  - Headache [Unknown]

NARRATIVE: CASE EVENT DATE: 2013
